FAERS Safety Report 15701525 (Version 1)
Quarter: 2018Q4

REPORT INFORMATION
  Report Type: Spontaneous
  Country: FR (occurrence: FR)
  Receive Date: 20181208
  Receipt Date: 20181208
  Transmission Date: 20190205
  Serious: Yes (Other)
  Sender: FDA-Public Use
  Company Number: FR-BAXTER-2018BAX028741

PATIENT
  Age: 72 Year
  Sex: Male
  Weight: 49 kg

DRUGS (2)
  1. DIANEAL PD4 GLUCOSE 3.86 %, SOLUTION POUR DIALYSE P?RITON?ALE EN POCHE [Suspect]
     Active Substance: CALCIUM CHLORIDE\DEXTROSE\MAGNESIUM CHLORIDE\SODIUM CHLORIDE\SODIUM LACTATE
     Indication: PERITONEAL EQUILIBRATION TEST
     Route: 033
     Dates: start: 2018
  2. DIANEAL PD4 GLUCOSE 3.86 %, SOLUTION POUR DIALYSE P?RITON?ALE EN POCHE [Suspect]
     Active Substance: CALCIUM CHLORIDE\DEXTROSE\MAGNESIUM CHLORIDE\SODIUM CHLORIDE\SODIUM LACTATE
     Indication: PERITONEAL DIALYSIS
     Route: 033
     Dates: start: 20181112, end: 20181112

REACTIONS (3)
  - Syncope [Recovered/Resolved]
  - Abdominal pain [Recovered/Resolved]
  - Vomiting [Recovered/Resolved]

NARRATIVE: CASE EVENT DATE: 20181112
